FAERS Safety Report 8999054 (Version 1)
Quarter: 2013Q1

REPORT INFORMATION
  Report Type: Spontaneous
  Country: US (occurrence: US)
  Receive Date: 20130103
  Receipt Date: 20130103
  Transmission Date: 20140127
  Serious: No
  Sender: FDA-Public Use
  Company Number: US-BAYER-2013-000269

PATIENT
  Age: 13 Year
  Sex: Female

DRUGS (1)
  1. YAZ [Suspect]

REACTIONS (3)
  - Aggression [None]
  - Agitation [None]
  - Irritability [None]
